FAERS Safety Report 5132372-7 (Version None)
Quarter: 2006Q4

REPORT INFORMATION
  Report Type: 
  Country: None (occurrence: None)
  Receive Date: 20061019
  Receipt Date: 20061019
  Transmission Date: 20070319
  Serious: Yes (Other)
  Sender: FDA-Public Use
  Company Number: None

PATIENT
  Sex: Male
  Weight: 109.7705 kg

DRUGS (1)
  1. LEVAQUIN [Suspect]
     Indication: VIRAL INFECTION
     Dosage: 500MG  PO   7 DAYS COMPLETED
     Route: 048

REACTIONS (1)
  - HEPATITIS FULMINANT [None]
